FAERS Safety Report 21564648 (Version 2)
Quarter: 2022Q4

REPORT INFORMATION
  Report Type: Spontaneous
  Country: FR (occurrence: FR)
  Receive Date: 20221108
  Receipt Date: 20221117
  Transmission Date: 20230113
  Serious: Yes (Other)
  Sender: FDA-Public Use
  Company Number: FR-ABBVIE-22K-056-4391043-00

PATIENT
  Age: 56 Year
  Sex: Female

DRUGS (9)
  1. DEPAKOTE [Suspect]
     Active Substance: DIVALPROEX SODIUM
     Indication: Bipolar disorder
     Dosage: TIME INTERVAL: 0.33333333 DAYS: 250 MG, TID
     Route: 048
     Dates: start: 2021
  2. DEPAKOTE [Suspect]
     Active Substance: DIVALPROEX SODIUM
     Indication: Bipolar disorder
     Dosage: 250 MG TABLET AT NOON AND IN THE EVENING.
     Route: 048
     Dates: start: 2021
  3. ABILIFY [Concomitant]
     Active Substance: ARIPIPRAZOLE
     Indication: Product used for unknown indication
  4. CALCIUM [Concomitant]
     Active Substance: CALCIUM
     Indication: Product used for unknown indication
  5. LORMETAZEPAM [Concomitant]
     Active Substance: LORMETAZEPAM
     Indication: Product used for unknown indication
  6. FLECAINIDE [Concomitant]
     Active Substance: FLECAINIDE
     Indication: Product used for unknown indication
     Dosage: FLECAINE LP
  7. CODEINE [Concomitant]
     Active Substance: CODEINE
     Indication: Product used for unknown indication
  8. OXAZEPAM [Concomitant]
     Active Substance: OXAZEPAM
     Indication: Product used for unknown indication
  9. ACETAMINOPHEN [Concomitant]
     Active Substance: ACETAMINOPHEN
     Indication: Product used for unknown indication

REACTIONS (20)
  - Multiple sclerosis [Unknown]
  - Blood calcium increased [Unknown]
  - Cardiac disorder [Unknown]
  - Hyperparathyroidism [Unknown]
  - Abdominal pain upper [Unknown]
  - Osteoporosis [Unknown]
  - Myalgia [Unknown]
  - Intentional product use issue [Unknown]
  - Condition aggravated [Unknown]
  - Vein disorder [Unknown]
  - Ventricular extrasystoles [Unknown]
  - Weight decreased [Unknown]
  - Femoral neck fracture [Unknown]
  - Dysphagia [Unknown]
  - Walking aid user [Unknown]
  - Osteoporotic fracture [Unknown]
  - Obesity [Unknown]
  - Musculoskeletal stiffness [Unknown]
  - Gait disturbance [Unknown]
  - Parathyroid disorder [Unknown]

NARRATIVE: CASE EVENT DATE: 20210101
